FAERS Safety Report 5594481-8 (Version None)
Quarter: 2008Q1

REPORT INFORMATION
  Report Type: 
  Country: None (occurrence: None)
  Receive Date: 20080117
  Receipt Date: 20080102
  Transmission Date: 20080703
  Serious: Yes (Other)
  Sender: FDA-Public Use
  Company Number: FR-TEVA-165797ISR

PATIENT
  Sex: Female

DRUGS (7)
  1. PACLITAXEL [Suspect]
  2. CARBOPLATIN [Concomitant]
  3. EPOETIN BETA [Concomitant]
  4. VITIS VINIFERA EXTRACT [Concomitant]
  5. ACETAMINOPHEN W/ PROPOXYPHENE HCL [Concomitant]
  6. FLUINDIONE [Concomitant]
  7. MONOPLUS [Concomitant]

REACTIONS (1)
  - LUPUS-LIKE SYNDROME [None]
